FAERS Safety Report 25368332 (Version 1)
Quarter: 2025Q2

REPORT INFORMATION
  Report Type: Report from Study
  Country: GB (occurrence: GB)
  Receive Date: 20250528
  Receipt Date: 20250528
  Transmission Date: 20250717
  Serious: Yes (Other)
  Sender: ROCHE
  Company Number: GB-ROCHE-10000291286

PATIENT

DRUGS (2)
  1. ATEZOLIZUMAB [Suspect]
     Active Substance: ATEZOLIZUMAB
     Indication: Hepatocellular carcinoma
     Route: 042
  2. BEVACIZUMAB [Suspect]
     Active Substance: BEVACIZUMAB
     Indication: Hepatocellular carcinoma
     Route: 042

REACTIONS (25)
  - Hypertension [Unknown]
  - Fatigue [Unknown]
  - Proteinuria [Unknown]
  - Bleeding varicose vein [Unknown]
  - Mucosal inflammation [Unknown]
  - Musculoskeletal disorder [Unknown]
  - Pruritus [Unknown]
  - Rash [Unknown]
  - Diarrhoea [Unknown]
  - Alanine aminotransferase abnormal [Unknown]
  - Hyperthyroidism [Unknown]
  - Hepatitis [Unknown]
  - Epistaxis [Unknown]
  - Cardiac disorder [Unknown]
  - Thrombosis [Unknown]
  - Hypothyroidism [Unknown]
  - Respiratory disorder [Unknown]
  - Pancreatitis [Unknown]
  - Hypothalamo-pituitary disorder [Unknown]
  - Haemoptysis [Unknown]
  - Rectal haemorrhage [Unknown]
  - Haemorrhage intracranial [Unknown]
  - Haematuria [Unknown]
  - Retinal haemorrhage [Unknown]
  - Hepatic failure [Unknown]
